FAERS Safety Report 19503041 (Version 1)
Quarter: 2021Q3

REPORT INFORMATION
  Report Type: Spontaneous
  Country: US (occurrence: US)
  Receive Date: 20210707
  Receipt Date: 20210707
  Transmission Date: 20211014
  Serious: No
  Sender: FDA-Public Use
  Company Number: NVSC2021US147481

PATIENT
  Sex: Female

DRUGS (2)
  1. MEKINIST [Suspect]
     Active Substance: TRAMETINIB DIMETHYL SULFOXIDE
     Indication: ILLNESS
     Dosage: 1.5 MG, QD
     Route: 048
     Dates: start: 202106
  2. TAFINLAR [Suspect]
     Active Substance: DABRAFENIB MESYLATE
     Indication: ILLNESS
     Dosage: 100 MG, Q12H
     Route: 048
     Dates: start: 202106

REACTIONS (1)
  - Pyrexia [Unknown]
